FAERS Safety Report 7477918-9 (Version None)
Quarter: 2011Q2

REPORT INFORMATION
  Report Type: 
  Country: None (occurrence: None)
  Receive Date: 20110513
  Receipt Date: 20110429
  Transmission Date: 20111010
  Serious: Yes (Other)
  Sender: FDA-Public Use
  Company Number: US-BAYER-2011-006550

PATIENT
  Sex: Male

DRUGS (15)
  1. HYDROCHLOROTHIAZIDE [Concomitant]
     Dosage: UNK
     Route: 048
  2. ELAVIL [Concomitant]
     Dosage: UNK
     Route: 048
  3. TRASYLOL [Suspect]
     Indication: PRODUCT USED FOR UNKNOWN INDICATION
     Route: 042
  4. TOPROL-XL [Concomitant]
     Dosage: 25 MG, UNK
     Route: 048
  5. METFORMIN HCL [Concomitant]
     Route: 048
  6. LEXAPRO [Concomitant]
     Route: 048
  7. INTEGRILIN [Concomitant]
     Dosage: UNK
     Route: 042
     Dates: start: 20051116
  8. ALTACE [Concomitant]
     Dosage: 10 MG, UNK
     Route: 048
  9. GLIPIZIDE [Concomitant]
     Dosage: 30 MG, BID
     Route: 048
  10. RESTORIL [Concomitant]
     Dosage: ONE CAPSULE AS NEEDED
     Route: 048
  11. VICODIN [Concomitant]
     Dosage: UNK
     Route: 048
  12. LIPITOR [Concomitant]
     Dosage: 20 MG, UNK
     Route: 048
  13. ACTOS [Concomitant]
     Dosage: UNK
     Route: 048
  14. PLAVIX [Concomitant]
     Dosage: 75 MG, QD
     Route: 048
  15. INTEGRILIN [Concomitant]
     Dosage: UNK
     Route: 042
     Dates: start: 20050103

REACTIONS (13)
  - RENAL FAILURE [None]
  - DEPRESSION [None]
  - ANHEDONIA [None]
  - EMOTIONAL DISTRESS [None]
  - FEAR OF DEATH [None]
  - FEAR [None]
  - PAIN [None]
  - MULTI-ORGAN FAILURE [None]
  - INJURY [None]
  - RENAL INJURY [None]
  - UNEVALUABLE EVENT [None]
  - ANXIETY [None]
  - NERVOUSNESS [None]
